FAERS Safety Report 9242683 (Version 1)
Quarter: 2013Q2

REPORT INFORMATION
  Report Type: Spontaneous
  Country: GR (occurrence: GR)
  Receive Date: 20130419
  Receipt Date: 20130419
  Transmission Date: 20140414
  Serious: Yes (Death)
  Sender: FDA-Public Use
  Company Number: GR-GLAXOSMITHKLINE-B0885364A

PATIENT
  Sex: Female

DRUGS (3)
  1. REVOLADE [Suspect]
     Indication: PLATELET COUNT DECREASED
     Route: 065
  2. CORTISONE [Concomitant]
     Indication: PLATELET COUNT DECREASED
     Route: 065
  3. Y-GLOBULIN [Concomitant]
     Indication: PRODUCT USED FOR UNKNOWN INDICATION
     Route: 065

REACTIONS (1)
  - Infection [Fatal]
